FAERS Safety Report 6202957-5 (Version None)
Quarter: 2009Q2

REPORT INFORMATION
  Report Type: 
  Country: None (occurrence: None)
  Receive Date: 20090526
  Receipt Date: 20090514
  Transmission Date: 20091009
  Serious: Yes (Disabling)
  Sender: FDA-Public Use
  Company Number: ZA-GILEAD-2009-0021979

PATIENT
  Sex: Male

DRUGS (8)
  1. TRUVADA [Suspect]
     Indication: HIV INFECTION
     Route: 048
     Dates: start: 20060525
  2. KALETRA [Suspect]
     Indication: HIV INFECTION
     Route: 048
     Dates: start: 20060525
  3. CIPROFLOXACIN [Concomitant]
     Dates: start: 20071015
  4. ETHIONAMIDE [Concomitant]
     Indication: PULMONARY TUBERCULOSIS
     Dates: start: 20071015
  5. ETHAMBUTOL HCL [Concomitant]
     Indication: PULMONARY TUBERCULOSIS
     Dates: start: 20071015
  6. PYRAZINAMIDE [Concomitant]
     Indication: PULMONARY TUBERCULOSIS
     Dates: start: 20071015
  7. TERIZIDONE [Concomitant]
     Indication: PULMONARY TUBERCULOSIS
     Dates: start: 20071015
  8. PYRIDOXINE [Concomitant]
     Indication: PULMONARY TUBERCULOSIS
     Dates: start: 20071015

REACTIONS (3)
  - ALANINE AMINOTRANSFERASE INCREASED [None]
  - ASPARTATE AMINOTRANSFERASE INCREASED [None]
  - HYPERURICAEMIA [None]
